FAERS Safety Report 5477086-9 (Version None)
Quarter: 2007Q4

REPORT INFORMATION
  Report Type: 
  Country: None (occurrence: None)
  Receive Date: 20071003
  Receipt Date: 20071003
  Transmission Date: 20080405
  Serious: Yes (Life-Threatening)
  Sender: FDA-Public Use
  Company Number: None

PATIENT
  Age: 43 Year
  Sex: Female
  Weight: 52.1637 kg

DRUGS (1)
  1. CHANTIX [Suspect]
     Indication: SMOKING CESSATION THERAPY
     Dosage: 1MG  TWICE DAILY  PO
     Route: 048
     Dates: start: 20070713, end: 20070924

REACTIONS (13)
  - AGGRESSION [None]
  - ALCOHOLISM [None]
  - ANHEDONIA [None]
  - ANOREXIA [None]
  - APATHY [None]
  - ASTHENIA [None]
  - BRADYPHRENIA [None]
  - CRYING [None]
  - DEPRESSION [None]
  - DISTURBANCE IN ATTENTION [None]
  - FEELING ABNORMAL [None]
  - INTENTIONAL SELF-INJURY [None]
  - STRESS [None]
